FAERS Safety Report 18867000 (Version 1)
Quarter: 2021Q1

REPORT INFORMATION
  Report Type: Spontaneous
  Country: US (occurrence: US)
  Receive Date: 20210209
  Receipt Date: 20210209
  Transmission Date: 20210420
  Serious: Yes (Life-Threatening, Hospitalization, Other)
  Sender: FDA-Public Use
  Company Number: US-LEADINGPHARMA-US-2021LEALIT00047

PATIENT
  Age: 35 Year
  Sex: Female

DRUGS (18)
  1. LIDOCAINE. [Suspect]
     Active Substance: LIDOCAINE
     Indication: ARRHYTHMIA
     Route: 065
  2. DEXMEDETOMIDINE. [Suspect]
     Active Substance: DEXMEDETOMIDINE
     Indication: INTRAOPERATIVE CARE
     Dosage: 0.7 MCG/KG/HR
     Route: 065
  3. KETAMINE [Suspect]
     Active Substance: KETAMINE
     Indication: INTRAOPERATIVE CARE
     Dosage: 10 MG/HR
     Route: 065
  4. NOREPINEPHRINE. [Suspect]
     Active Substance: NOREPINEPHRINE
     Indication: RIGHT VENTRICULAR DYSFUNCTION
     Dosage: 0.4MCG/KG/MIN
     Route: 065
  5. LORAZEPAM A [Interacting]
     Active Substance: LORAZEPAM
     Indication: SEIZURE
     Route: 065
  6. LEVETIRACETAM. [Interacting]
     Active Substance: LEVETIRACETAM
     Indication: SEIZURE
     Route: 065
  7. LIDOCAINE. [Suspect]
     Active Substance: LIDOCAINE
     Dosage: 226 MG /HOUR
     Route: 065
  8. VASOPRESSIN INJECTION [Suspect]
     Active Substance: VASOPRESSIN
     Indication: INTRAOPERATIVE CARE
     Dosage: 0.03 UNITS/MIN
     Route: 065
  9. EPINEPHRINE. [Suspect]
     Active Substance: EPINEPHRINE
     Indication: INTRAOPERATIVE CARE
     Dosage: 0.04 MCG/KG/MIN
     Route: 065
  10. FENTANYL. [Suspect]
     Active Substance: FENTANYL
     Indication: GENERAL ANAESTHESIA
     Dosage: 200 MCG
     Route: 065
  11. PROPOFOL. [Suspect]
     Active Substance: PROPOFOL
     Indication: GENERAL ANAESTHESIA
     Route: 065
  12. LIDOCAINE. [Suspect]
     Active Substance: LIDOCAINE
     Indication: PERIOPERATIVE ANALGESIA
     Route: 065
  13. PHENYLEPHRINE [Suspect]
     Active Substance: PHENYLEPHRINE HYDROCHLORIDE
     Indication: INTRAOPERATIVE CARE
     Dosage: 1.5 MCG/KG/MIN
     Route: 065
  14. EPOPROSTENOL. [Suspect]
     Active Substance: EPOPROSTENOL
     Indication: INTRAOPERATIVE CARE
     Dosage: 50 NG/KG/MIN
     Route: 065
  15. MIDAZOLAM. [Interacting]
     Active Substance: MIDAZOLAM
     Route: 065
  16. MIDAZOLAM. [Interacting]
     Active Substance: MIDAZOLAM
     Dosage: 0.2 MG/KG/HR
     Route: 040
  17. PROCAINAMIDE HYDROCHLORIDE. [Interacting]
     Active Substance: PROCAINAMIDE HYDROCHLORIDE
     Indication: VENTRICULAR TACHYCARDIA
     Dosage: 1MG/MIN
     Route: 065
  18. ROCURONIUM [Suspect]
     Active Substance: ROCURONIUM BROMIDE
     Indication: GENERAL ANAESTHESIA
     Route: 065

REACTIONS (5)
  - Local anaesthetic systemic toxicity [Recovered/Resolved]
  - Neurotoxicity [Recovered/Resolved]
  - Drug interaction [Recovered/Resolved]
  - Respiratory acidosis [Recovered/Resolved]
  - Generalised tonic-clonic seizure [Recovered/Resolved]
